FAERS Safety Report 13433323 (Version 4)
Quarter: 2018Q3

REPORT INFORMATION
  Report Type: Report from Study
  Country: None (occurrence: JP)
  Receive Date: 20170412
  Receipt Date: 20180831
  Transmission Date: 20181010
  Serious: Yes (Other)
  Sender: FDA-Public Use
  Company Number: JP-ABBVIE-15P-087-1351409-00

PATIENT
  Age: 4 Year
  Sex: Female

DRUGS (61)
  1. TOBI [Suspect]
     Active Substance: TOBRAMYCIN
     Dosage: 2 DF, QD
     Route: 055
     Dates: start: 20150820, end: 20150916
  2. TOBI [Suspect]
     Active Substance: TOBRAMYCIN
     Dosage: 2 DF, QD
     Route: 055
     Dates: start: 20151210, end: 20160105
  3. TOBI [Suspect]
     Active Substance: TOBRAMYCIN
     Dosage: 2 DF, QD
     Route: 055
     Dates: start: 20180329, end: 20180425
  4. LIPACREON [Suspect]
     Active Substance: PANCRELIPASE
     Indication: PANCREATIC FAILURE
     Dosage: 450 MG, QD
     Route: 048
     Dates: start: 20131212, end: 20160117
  5. LIPACREON [Suspect]
     Active Substance: PANCRELIPASE
     Dosage: 600 MG, QD
     Route: 048
     Dates: start: 20160118
  6. MUCOSOLVAN [Concomitant]
     Active Substance: AMBROXOL HYDROCHLORIDE
     Dosage: ONGOING
     Route: 048
  7. INTAL [Concomitant]
     Active Substance: CROMOLYN SODIUM
     Dosage: ONGOING
     Route: 055
  8. MEPTIN [Concomitant]
     Active Substance: PROCATEROL HYDROCHLORIDE
     Indication: CYSTIC FIBROSIS PANCREATIC
     Dosage: .4MILLILITER
     Route: 055
  9. MEPTIN [Concomitant]
     Active Substance: PROCATEROL HYDROCHLORIDE
     Dosage: ONGOING
     Route: 055
  10. CLARITHROMYCIN. [Concomitant]
     Active Substance: CLARITHROMYCIN
     Dosage: UNK
     Route: 048
     Dates: start: 20171121
  11. CARBAZOCHROME SODIUM SULFONATE [Concomitant]
     Active Substance: CARBAZOCHROME SODIUM SULFONATE
     Dosage: UNK
     Route: 048
     Dates: start: 20171029, end: 20171103
  12. TOBI [Suspect]
     Active Substance: TOBRAMYCIN
     Dosage: 2 DF, QD
     Route: 055
     Dates: start: 20140918, end: 20141015
  13. TOBI [Suspect]
     Active Substance: TOBRAMYCIN
     Dosage: 2 DF, QD
     Route: 055
     Dates: start: 20161110, end: 20161207
  14. TOBI [Suspect]
     Active Substance: TOBRAMYCIN
     Dosage: 2 DF, QD
     Route: 055
     Dates: start: 20170622, end: 20170719
  15. TOBI [Suspect]
     Active Substance: TOBRAMYCIN
     Dosage: 2 DF, QD
     Route: 055
     Dates: start: 20171207, end: 20180103
  16. TOBI [Suspect]
     Active Substance: TOBRAMYCIN
     Dosage: 2 DF, QD
     Route: 055
     Dates: start: 20180201, end: 20180228
  17. SINGULAIR [Concomitant]
     Active Substance: MONTELUKAST SODIUM
     Dosage: ONGOING
     Route: 048
  18. MEPTIN [Concomitant]
     Active Substance: PROCATEROL HYDROCHLORIDE
     Dosage: ONGOING
     Route: 055
  19. TRANSAMIN [Concomitant]
     Active Substance: TRANEXAMIC ACID
     Dosage: UNK
     Route: 048
     Dates: start: 20171029, end: 20171103
  20. TOBI [Suspect]
     Active Substance: TOBRAMYCIN
     Dosage: 2 DF, QD
     Route: 055
     Dates: start: 20140403, end: 20140430
  21. TOBI [Suspect]
     Active Substance: TOBRAMYCIN
     Dosage: 2 DF, QD
     Route: 055
     Dates: start: 20170302, end: 20170329
  22. TOBI [Suspect]
     Active Substance: TOBRAMYCIN
     Dosage: 2 DF, QD
     Route: 055
     Dates: start: 20170817, end: 20170913
  23. TOBI [Suspect]
     Active Substance: TOBRAMYCIN
     Dosage: 2 DF, QD
     Route: 055
     Dates: start: 20171012, end: 20171108
  24. KLARICID [Concomitant]
     Active Substance: CLARITHROMYCIN
     Indication: ILL-DEFINED DISORDER
     Dosage: 80MILLILITER
     Route: 048
     Dates: end: 20151208
  25. DAIPHEN [Concomitant]
     Active Substance: SULFAMETHOXAZOLE\TRIMETHOPRIM
     Indication: PRODUCT USED FOR UNKNOWN INDICATION
     Dosage: UNK
     Route: 048
     Dates: start: 20160118
  26. CARBAZOCHROME SODIUM SULFONATE [Concomitant]
     Active Substance: CARBAZOCHROME SODIUM SULFONATE
     Dosage: UNK
     Route: 048
     Dates: start: 20171015, end: 20171022
  27. TRANSAMIN [Concomitant]
     Active Substance: TRANEXAMIC ACID
     Dosage: UNK
     Route: 048
     Dates: start: 20171008, end: 20171011
  28. TOBI [Suspect]
     Active Substance: TOBRAMYCIN
     Dosage: 2 DF, QD
     Route: 055
     Dates: start: 20160204, end: 20160302
  29. TOBI [Suspect]
     Active Substance: TOBRAMYCIN
     Dosage: 2 DF, QD
     Route: 055
     Dates: start: 20160526, end: 20160622
  30. SINGULAIR [Concomitant]
     Active Substance: MONTELUKAST SODIUM
     Indication: ASTHMA
     Dosage: 4MILLIGRAM
     Route: 048
  31. BACTRAMIN [Concomitant]
     Active Substance: SULFAMETHOXAZOLE\TRIMETHOPRIM
     Dosage: 1.5DOSAGE FORMS
     Route: 048
     Dates: start: 20151014, end: 20160117
  32. INTAL [Concomitant]
     Active Substance: CROMOLYN SODIUM
     Indication: ASTHMA
     Dosage: 2AMPOULE
     Route: 055
  33. INTAL [Concomitant]
     Active Substance: CROMOLYN SODIUM
     Dosage: ONGOING
     Route: 055
  34. CARBAZOCHROME SODIUM SULFONATE [Concomitant]
     Active Substance: CARBAZOCHROME SODIUM SULFONATE
     Dosage: UNK
     Route: 048
     Dates: start: 20171008, end: 20171011
  35. TRANSAMIN [Concomitant]
     Active Substance: TRANEXAMIC ACID
     Dosage: UNK
     Route: 048
     Dates: start: 20171015, end: 20171022
  36. TOBI [Suspect]
     Active Substance: TOBRAMYCIN
     Dosage: 2 DF, QD
     Route: 055
     Dates: start: 20140206, end: 20140305
  37. TOBI [Suspect]
     Active Substance: TOBRAMYCIN
     Dosage: 2 DF, QD
     Route: 055
     Dates: start: 20140529, end: 20140625
  38. TOBI [Suspect]
     Active Substance: TOBRAMYCIN
     Dosage: 2 DF, QD
     Route: 055
     Dates: start: 20140724, end: 20140820
  39. TOBI [Suspect]
     Active Substance: TOBRAMYCIN
     Dosage: 2 DF, QD
     Route: 055
     Dates: start: 20150305, end: 20150401
  40. TOBI [Suspect]
     Active Substance: TOBRAMYCIN
     Dosage: 2 DF, QD
     Route: 055
     Dates: start: 20170105, end: 20170201
  41. TOBI [Suspect]
     Active Substance: TOBRAMYCIN
     Dosage: 2 DF, QD
     Route: 055
     Dates: start: 20170427, end: 20170524
  42. MUCOSOLVAN [Concomitant]
     Active Substance: AMBROXOL HYDROCHLORIDE
     Indication: CYSTIC FIBROSIS PANCREATIC
     Dosage: 5MILLILITER
     Route: 048
     Dates: start: 20180115
  43. BACTRAMIN [Concomitant]
     Active Substance: SULFAMETHOXAZOLE\TRIMETHOPRIM
     Indication: ILL-DEFINED DISORDER
     Dosage: 1DOSAGE FORMS
     Route: 048
     Dates: end: 20151013
  44. KLARICID [Concomitant]
     Active Substance: CLARITHROMYCIN
     Dosage: 90MILLIGRAM
     Route: 048
     Dates: start: 20151209, end: 20160412
  45. CARBOCISTEINE [Concomitant]
     Active Substance: CARBOCYSTEINE
     Indication: CYSTIC FIBROSIS PANCREATIC
     Dosage: UNK
     Route: 048
     Dates: start: 20151209
  46. CARBAZOCHROME SODIUM SULFONATE [Concomitant]
     Active Substance: CARBAZOCHROME SODIUM SULFONATE
     Indication: HAEMOPTYSIS
     Dosage: UNK
     Route: 048
     Dates: start: 20170818, end: 20170822
  47. TRANSAMIN [Concomitant]
     Active Substance: TRANEXAMIC ACID
     Indication: HAEMOPTYSIS
     Dosage: UNK
     Route: 048
     Dates: start: 20170818, end: 20170826
  48. PULMOZYME [Suspect]
     Active Substance: DORNASE ALFA
     Indication: CYSTIC FIBROSIS PANCREATIC
     Dosage: ONGOING
     Route: 055
     Dates: start: 20131212
  49. TOBI [Suspect]
     Active Substance: TOBRAMYCIN
     Indication: CYSTIC FIBROSIS PANCREATIC
     Dosage: 2 DF, QD
     Route: 055
     Dates: start: 20131212, end: 20140108
  50. TOBI [Suspect]
     Active Substance: TOBRAMYCIN
     Dosage: 2 DF, QD
     Route: 055
     Dates: start: 20141113, end: 20141210
  51. TOBI [Suspect]
     Active Substance: TOBRAMYCIN
     Dosage: 2 DF, QD
     Route: 055
     Dates: start: 20150108, end: 20150204
  52. TOBI [Suspect]
     Active Substance: TOBRAMYCIN
     Dosage: 2 DF, QD
     Route: 055
     Dates: start: 20150430, end: 20150527
  53. TOBI [Suspect]
     Active Substance: TOBRAMYCIN
     Dosage: 2 DF, QD
     Route: 055
     Dates: start: 20150625, end: 20150722
  54. TOBI [Suspect]
     Active Substance: TOBRAMYCIN
     Dosage: 2 DF, QD
     Route: 055
     Dates: start: 20151015, end: 20151111
  55. TOBI [Suspect]
     Active Substance: TOBRAMYCIN
     Dosage: 2 DF, QD
     Route: 055
     Dates: start: 20160331, end: 20160427
  56. TOBI [Suspect]
     Active Substance: TOBRAMYCIN
     Dosage: 2 DF, QD
     Route: 055
     Dates: start: 20160721, end: 20160817
  57. SINGULAIR [Concomitant]
     Active Substance: MONTELUKAST SODIUM
     Dosage: ONGOING
     Route: 048
  58. MUCODYNE [Concomitant]
     Active Substance: CARBOCYSTEINE
     Indication: CYSTIC FIBROSIS PANCREATIC
     Dosage: 9MILLILITER
     Route: 048
     Dates: end: 20151208
  59. TOBI [Suspect]
     Active Substance: TOBRAMYCIN
     Dosage: 2 DF, QD
     Route: 055
     Dates: start: 20160915, end: 20161012
  60. MUCOSOLVAN [Concomitant]
     Active Substance: AMBROXOL HYDROCHLORIDE
     Dosage: ONGOING
     Route: 048
  61. CLARITHROMYCIN. [Concomitant]
     Active Substance: CLARITHROMYCIN
     Indication: PRODUCT USED FOR UNKNOWN INDICATION
     Dosage: UNK
     Route: 048
     Dates: start: 20160413, end: 20171121

REACTIONS (2)
  - Dysphonia [Not Recovered/Not Resolved]
  - Renal tubular disorder [Not Recovered/Not Resolved]

NARRATIVE: CASE EVENT DATE: 20141030
